FAERS Safety Report 6282475-9 (Version None)
Quarter: 2009Q3

REPORT INFORMATION
  Report Type: 
  Country: None (occurrence: None)
  Receive Date: 20090721
  Receipt Date: 20090721
  Transmission Date: 20100115
  Serious: Yes (Other)
  Sender: FDA-Public Use
  Company Number: None

PATIENT
  Age: 3 Year
  Sex: Female

DRUGS (2)
  1. ANDROGEL [Suspect]
     Indication: HYPOGONADISM
  2. TESTOSTERONE [Suspect]
     Indication: BACK PAIN

REACTIONS (5)
  - ACCIDENTAL EXPOSURE [None]
  - BLOOD TESTOSTERONE INCREASED [None]
  - ECONOMIC PROBLEM [None]
  - EMOTIONAL DISORDER [None]
  - PRODUCT LABEL ISSUE [None]
